FAERS Safety Report 14195531 (Version 1)
Quarter: 2017Q4

REPORT INFORMATION
  Report Type: Spontaneous
  Country: CA (occurrence: CA)
  Receive Date: 20171116
  Receipt Date: 20171116
  Transmission Date: 20180321
  Serious: Yes (Other)
  Sender: FDA-Public Use
  Company Number: CA-PFIZER INC-2017487618

PATIENT
  Age: 52 Year
  Sex: Female

DRUGS (2)
  1. METHOTREXATE SODIUM. [Suspect]
     Active Substance: METHOTREXATE SODIUM
     Dosage: UNK
  2. VITAMIN B12 [Concomitant]
     Active Substance: CYANOCOBALAMIN
     Dosage: UNK

REACTIONS (7)
  - Crohn^s disease [Unknown]
  - Constipation [Unknown]
  - Abdominal distension [Unknown]
  - Abdominal pain [Unknown]
  - Treatment failure [Unknown]
  - Intestinal obstruction [Unknown]
  - Diarrhoea [Unknown]

NARRATIVE: CASE EVENT DATE: 201706
